FAERS Safety Report 5227470-3 (Version None)
Quarter: 2007Q1

REPORT INFORMATION
  Report Type: 
  Country: None (occurrence: None)
  Receive Date: 20061201
  Receipt Date: 20061016
  Transmission Date: 20070707
  Serious: No
  Sender: FDA-Public Use
  Company Number: US200610003460

PATIENT
  Sex: Female

DRUGS (6)
  1. CYMBALTA [Suspect]
     Dosage: SEE IMAGE
     Dates: start: 20060620, end: 20061003
  2. CYMBALTA [Suspect]
     Dosage: SEE IMAGE
     Dates: start: 20061003, end: 20061010
  3. ZOLOFT [Concomitant]
  4. NEURONTIN [Concomitant]
  5. CAMPRAL /GFR/ (ACAMPROSATE CALCIUM) [Concomitant]
  6. REMERON [Concomitant]

REACTIONS (2)
  - HEADACHE [None]
  - TINNITUS [None]
